FAERS Safety Report 5157564-2 (Version None)
Quarter: 2006Q4

REPORT INFORMATION
  Report Type: 
  Country: None (occurrence: None)
  Receive Date: 20061127
  Receipt Date: 20061117
  Transmission Date: 20070319
  Serious: Yes (Other)
  Sender: FDA-Public Use
  Company Number: FR-GLAXOSMITHKLINE-B0447894A

PATIENT
  Age: 79 Year
  Sex: Male

DRUGS (7)
  1. LAMICTAL [Suspect]
     Route: 048
     Dates: start: 20060601
  2. DEPAKINE 500 [Concomitant]
     Dosage: 1500MG PER DAY
     Route: 048
     Dates: start: 20060101, end: 20061002
  3. VALPROATE SODIUM + VALPROIC ACID [Concomitant]
     Dosage: 1000MG PER DAY
     Route: 065
     Dates: start: 20061002
  4. AMLOR [Concomitant]
     Route: 065
  5. SERMION [Concomitant]
     Route: 065
  6. ASPIRIN [Concomitant]
     Route: 065
  7. MOLSIDOMIN [Concomitant]
     Route: 065

REACTIONS (6)
  - DEPRESSED LEVEL OF CONSCIOUSNESS [None]
  - DYSKINESIA [None]
  - EPILEPSY [None]
  - ERUCTATION [None]
  - FATIGUE [None]
  - MALAISE [None]
